FAERS Safety Report 4350292-2 (Version None)
Quarter: 2004Q2

REPORT INFORMATION
  Report Type: 
  Country: None (occurrence: None)
  Receive Date: 20040429
  Receipt Date: 20040422
  Transmission Date: 20050107
  Serious: Yes (Life-Threatening, Hospitalization)
  Sender: FDA-Public Use
  Company Number: US-MERCK-0404USA02294

PATIENT

DRUGS (2)
  1. [THERAPY UNSPECIFIED] [Concomitant]
     Route: 065
     Dates: start: 20040406
  2. ZETIA [Suspect]
     Route: 048
     Dates: start: 20040406

REACTIONS (1)
  - THROMBOCYTOPENIA [None]
